FAERS Safety Report 8952723 (Version 1)
Quarter: 2012Q4

REPORT INFORMATION
  Report Type: 
  Country: US (occurrence: US)
  Receive Date: 20121205
  Receipt Date: 20121205
  Transmission Date: 20130627
  Serious: No
  Sender: FDA-Public Use
  Company Number: US-TEVA-373721USA

PATIENT
  Age: 75 Year
  Sex: Female

DRUGS (3)
  1. QVAR [Suspect]
     Route: 055
  2. PAXIL [Concomitant]
  3. XANAX [Concomitant]

REACTIONS (7)
  - Dry throat [Unknown]
  - Throat irritation [Unknown]
  - Cough [Unknown]
  - Fungal infection [Unknown]
  - Tongue discolouration [Not Recovered/Not Resolved]
  - Pyrexia [Not Recovered/Not Resolved]
  - Dry mouth [Not Recovered/Not Resolved]
